FAERS Safety Report 16918784 (Version 15)
Quarter: 2022Q4

REPORT INFORMATION
  Report Type: Spontaneous
  Country: GB (occurrence: GB)
  Receive Date: 20191015
  Receipt Date: 20221031
  Transmission Date: 20230113
  Serious: Yes (Other)
  Sender: FDA-Public Use
  Company Number: None

PATIENT
  Sex: Male

DRUGS (49)
  1. DIHYDROCODEINE BITARTRATE [Suspect]
     Active Substance: DIHYDROCODEINE BITARTRATE
     Indication: Pain
     Dosage: 60 MILLIGRAM PM
     Route: 065
  2. DIHYDROCODEINE BITARTRATE [Suspect]
     Active Substance: DIHYDROCODEINE BITARTRATE
     Dosage: AS NECESSARY2 TO BE TAKEN 4 TIMES/DAYIF REQUIRED
     Route: 048
  3. DIHYDROCODEINE BITARTRATE [Suspect]
     Active Substance: DIHYDROCODEINE BITARTRATE
     Dosage: 60 MILLIGRAM, QD ( ONCE A DAY)
     Route: 048
  4. DIHYDROCODEINE BITARTRATE [Suspect]
     Active Substance: DIHYDROCODEINE BITARTRATE
     Dosage: 2 TO BE TAKEN 4 TIMES A DAY IF REQUIRED
     Route: 048
  5. DIHYDROCODEINE BITARTRATE [Suspect]
     Active Substance: DIHYDROCODEINE BITARTRATE
     Dosage: 240 MILLIGRAM, Q6H, (240 MG, Q6H, 4 TIMES DAILY
     Route: 048
  6. DIHYDROCODEINE BITARTRATE [Suspect]
     Active Substance: DIHYDROCODEINE BITARTRATE
     Dosage: 4 TIMES DAILY WITH OR JUST AFTER FOOD/MEAL
     Route: 048
  7. DIHYDROCODEINE BITARTRATE [Suspect]
     Active Substance: DIHYDROCODEINE BITARTRATE
     Dosage: AS NECESSARY 2 TO BE TAKEN 4 TIMES/DAY IFREQUIRED
     Route: 048
  8. DIHYDROCODEINE BITARTRATE [Suspect]
     Active Substance: DIHYDROCODEINE BITARTRATE
     Dosage: 60 MILLIGRAM PM
     Route: 048
  9. DIHYDROCODEINE BITARTRATE [Suspect]
     Active Substance: DIHYDROCODEINE BITARTRATE
     Dosage: 60 MILLIGRAM, QD (ONCE A DAY)
     Route: 048
  10. DIHYDROCODEINE BITARTRATE [Suspect]
     Active Substance: DIHYDROCODEINE BITARTRATE
     Dosage: 240 MG- 4 TIMES DAILY WITH OR JUST AFTER MEAL
     Route: 065
  11. DIHYDROCODEINE BITARTRATE [Suspect]
     Active Substance: DIHYDROCODEINE BITARTRATE
     Dosage: AS NECESSARY, 2 TO BE TAKEN 4 TIMES
     Route: 048
  12. DIHYDROCODEINE BITARTRATE [Suspect]
     Active Substance: DIHYDROCODEINE BITARTRATE
     Dosage: 60 MG QID,4 TIMES DAILY WITH/JUST AFTER FOOD/MEAL
     Route: 048
  13. DIHYDROCODEINE BITARTRATE [Suspect]
     Active Substance: DIHYDROCODEINE BITARTRATE
     Dosage: 2 TO BE TAKEN 4 TIMES A DAY IF REQUIRED
     Route: 048
  14. DIHYDROCODEINE BITARTRATE [Suspect]
     Active Substance: DIHYDROCODEINE BITARTRATE
     Dosage: AS NECESSARY 2 TO BE TAKEN 4 TIMES DAY IFREQUIRED
     Route: 048
  15. DIHYDROCODEINE BITARTRATE [Suspect]
     Active Substance: DIHYDROCODEINE BITARTRATE
     Dosage: ONCE A DAY FOUR TIMES DAILY WITH JUST AFTER FOOD
     Route: 048
  16. ESCITALOPRAM [Suspect]
     Active Substance: ESCITALOPRAM OXALATE
     Indication: Product used for unknown indication
     Dosage: 10 MILLIGRAM, QD (DAILY,MORNING)
     Route: 048
  17. ESCITALOPRAM [Suspect]
     Active Substance: ESCITALOPRAM OXALATE
     Dosage: 10 MILLIGRAM, AM (DAILY,MORNING)
     Route: 065
  18. OLANZAPINE [Suspect]
     Active Substance: OLANZAPINE
     Indication: Product used for unknown indication
     Dosage: 10 MILLIGRAM, QD, PRN (10 MG, ONCE A DAY)
     Route: 048
  19. OLANZAPINE [Suspect]
     Active Substance: OLANZAPINE
     Dosage: 5 MILLIGRAM, QD (ONCE A DAY)
     Route: 048
  20. OLANZAPINE [Suspect]
     Active Substance: OLANZAPINE
     Dosage: 5 MILLIGRAM, QD (ONCE A DAY)
     Route: 048
  21. OLANZAPINE [Suspect]
     Active Substance: OLANZAPINE
     Dosage: 10 MILLIGRAM, QD, ONCE A DAY
     Route: 048
  22. FERROUS SULFATE [Suspect]
     Active Substance: FERROUS SULFATE
     Indication: Anaemia
     Dosage: 420 MILLIGRAM,QD (MORNING AND NIGHT)
     Route: 048
  23. FERROUS SULFATE [Suspect]
     Active Substance: FERROUS SULFATE
     Dosage: 210 MG, BID (840 MG, QD MORNING AND NIGHT)
     Route: 048
  24. FERROUS SULFATE [Suspect]
     Active Substance: FERROUS SULFATE
     Dosage: 840 MG QD  (420 MG- MORNING AND NIGHT)
     Route: 048
  25. FERROUS SULFATE [Suspect]
     Active Substance: FERROUS SULFATE
     Dosage: 210 MG,BID(MORNING AND NIGHT)
     Route: 065
  26. FERROUS SULFATE [Suspect]
     Active Substance: FERROUS SULFATE
     Dosage: 210 MG,QD(MORNING AND NIGHT)
     Route: 048
  27. FERROUS SULFATE [Suspect]
     Active Substance: FERROUS SULFATE
     Dosage: 420 MG QD,MORNING AND NIGHT
     Route: 048
  28. FERROUS SULFATE [Suspect]
     Active Substance: FERROUS SULFATE
     Dosage: 210 MILLIGRAM (210 MG)
     Route: 048
  29. MIRTAZAPINE [Suspect]
     Active Substance: MIRTAZAPINE
     Indication: Product used for unknown indication
     Dosage: 30 MILLIGRAM, HS/QD (30 MILLIGRAM, DAILY, NIGHT)
     Route: 048
  30. AZATHIOPRINE [Suspect]
     Active Substance: AZATHIOPRINE
     Indication: Colitis
     Dosage: MORNING,LUNCH,TEA TIME WITH OR JUST AFTER FOOD
     Route: 048
  31. AZATHIOPRINE [Suspect]
     Active Substance: AZATHIOPRINE
     Dosage: 25 MILLIGRAM, Q8H (MORNING, LUNCH AND TEA TIME)
     Route: 048
  32. AZATHIOPRINE [Suspect]
     Active Substance: AZATHIOPRINE
     Dosage: MORNING,LUNCH,TEA TIME WITH/JUST AFTER FOOD/MEAL
     Route: 048
  33. AZATHIOPRINE [Suspect]
     Active Substance: AZATHIOPRINE
     Dosage: MORNING,LUNCH,TEA TIME WITH/JUST AFTER FOOD/MEAL
     Route: 048
  34. AZATHIOPRINE [Suspect]
     Active Substance: AZATHIOPRINE
     Dosage: MORNING,LUNCH,TEA TIME WITH/JUST AFTER FOOD/MEAL
     Route: 048
  35. AZATHIOPRINE [Suspect]
     Active Substance: AZATHIOPRINE
     Dosage: 75 MG, Q8H (MORNING, LUNCH AND TEA TIME)
     Route: 048
  36. AZATHIOPRINE [Suspect]
     Active Substance: AZATHIOPRINE
     Dosage: 25 MILLIGRAM, TID
     Route: 048
  37. AZATHIOPRINE [Suspect]
     Active Substance: AZATHIOPRINE
     Dosage: DAILY WITHJUST AFTER FOOD MORNING LUNCH TEA TIME
     Route: 048
  38. AZATHIOPRINE [Suspect]
     Active Substance: AZATHIOPRINE
     Dosage: MORNING LUNCH TEA TIME WITHJUST AFTER FOOD/MEAL
     Route: 048
  39. PROMETHAZINE HYDROCHLORIDE [Suspect]
     Active Substance: PROMETHAZINE HYDROCHLORIDE
     Indication: Product used for unknown indication
     Dosage: 25 MILLIGRAM, HS/QD (AT NIGHT)
     Route: 048
  40. PROMETHAZINE HYDROCHLORIDE [Suspect]
     Active Substance: PROMETHAZINE HYDROCHLORIDE
     Dosage: 25 MILLIGRAM, HS (25 MG, DAILY, AT NIGHT)
     Route: 048
  41. FOLIC ACID [Suspect]
     Active Substance: FOLIC ACID
     Indication: Folate deficiency
     Dosage: 5 MILLIGRAM, QD(5 MILLIGRAM,DAILY,MORNING)
     Route: 048
  42. FOLIC ACID [Suspect]
     Active Substance: FOLIC ACID
     Dosage: 5 MILLIGRAM, AM (5 MILLIGRAM, DAILY,MORNING)
     Route: 065
  43. IRON [Suspect]
     Active Substance: IRON
     Indication: Anaemia
     Dosage: 420 MILLIGRAM, QD, (210 MG, BID)
     Route: 048
  44. IRON [Suspect]
     Active Substance: IRON
     Dosage: 210 MILLIGRAM, BID
     Route: 048
  45. FERROUS FUMARATE [Suspect]
     Active Substance: FERROUS FUMARATE
     Indication: Anaemia
     Dosage: 210 MILLIGRAM, BID (Q12H, MORNING AND NIGHT)
     Route: 048
  46. FERROUS FUMARATE [Suspect]
     Active Substance: FERROUS FUMARATE
     Dosage: 210 MILLIGRAM, BID ONCE A DAY, MORNING AND NIGHT
     Route: 048
  47. FERROUS FUMARATE [Suspect]
     Active Substance: FERROUS FUMARATE
     Dosage: 420 MILLIGRAM, QD(MORNING AND NIGHT)
     Route: 048
  48. FERROUS FUMARATE [Suspect]
     Active Substance: FERROUS FUMARATE
     Dosage: 210 MILLIGRAM, BID 210 MG,Q12H, MORNING NIGHT
     Route: 048
  49. FOLIC ACID [Suspect]
     Active Substance: FOLIC ACID
     Indication: Product used for unknown indication
     Dosage: UNK
     Route: 065

REACTIONS (3)
  - Autoscopy [Unknown]
  - Seizure [Unknown]
  - Overdose [Unknown]
